FAERS Safety Report 9298519 (Version 2)
Quarter: 2013Q3

REPORT INFORMATION
  Report Type: Spontaneous
  Country: US (occurrence: US)
  Receive Date: 20130520
  Receipt Date: 20130801
  Transmission Date: 20140515
  Serious: Yes (Other)
  Sender: FDA-Public Use
  Company Number: US-ROCHE-788991

PATIENT
  Age: 24 Year
  Sex: Male
  Weight: 93.07 kg

DRUGS (2)
  1. ACCUTANE [Suspect]
     Indication: ACNE
     Route: 065
     Dates: start: 199412, end: 199502
  2. ACCUTANE [Suspect]
     Route: 065
     Dates: start: 199911, end: 20000226

REACTIONS (6)
  - Colitis ulcerative [Unknown]
  - Inflammatory bowel disease [Unknown]
  - Emotional distress [Unknown]
  - Large intestine polyp [Unknown]
  - Dry skin [Unknown]
  - Lip dry [Recovered/Resolved]
